FAERS Safety Report 7029740-5 (Version None)
Quarter: 2010Q4

REPORT INFORMATION
  Report Type: 
  Country: None (occurrence: None)
  Receive Date: 20101005
  Receipt Date: 20101005
  Transmission Date: 20110411
  Serious: Yes (Disabling, Other)
  Sender: FDA-Public Use
  Company Number: None

PATIENT
  Age: 46 Year
  Sex: Female
  Weight: 64.8644 kg

DRUGS (1)
  1. ISOVUE-370 [Suspect]
     Indication: COMPUTERISED TOMOGRAM
     Dates: start: 20100827, end: 20100827

REACTIONS (9)
  - ERYTHEMA [None]
  - FEELING HOT [None]
  - NO THERAPEUTIC RESPONSE [None]
  - PHOTOSENSITIVITY REACTION [None]
  - PRURITUS [None]
  - SKIN DISORDER [None]
  - SKIN TIGHTNESS [None]
  - SKIN WRINKLING [None]
  - SWELLING FACE [None]
